FAERS Safety Report 23230294 (Version 1)
Quarter: 2023Q4

REPORT INFORMATION
  Report Type: Report from Study
  Country: CA (occurrence: CA)
  Receive Date: 20231127
  Receipt Date: 20231127
  Transmission Date: 20240110
  Serious: Yes (Other)
  Sender: FDA-Public Use
  Company Number: CA-TAKEDA-2023TUS112052

PATIENT
  Sex: Male

DRUGS (1)
  1. VEDOLIZUMAB [Suspect]
     Active Substance: VEDOLIZUMAB
     Indication: Colitis ulcerative
     Dosage: 300 MILLIGRAM
     Route: 042
     Dates: start: 20220121

REACTIONS (7)
  - Blood pressure decreased [Recovered/Resolved]
  - Confusional state [Unknown]
  - Pallor [Recovered/Resolved]
  - Feeling hot [Recovered/Resolved]
  - Loss of consciousness [Unknown]
  - Nausea [Recovered/Resolved]
  - Dizziness [Unknown]
